FAERS Safety Report 16137073 (Version 1)
Quarter: 2019Q2

REPORT INFORMATION
  Report Type: Report from Study
  Country: CA (occurrence: CA)
  Receive Date: 20190401
  Receipt Date: 20190401
  Transmission Date: 20190711
  Serious: Yes (Hospitalization, Other)
  Sender: FDA-Public Use
  Company Number: CA-ROCHE-1827879

PATIENT
  Age: 6 Year
  Sex: Male
  Weight: 23.3 kg

DRUGS (12)
  1. ACTEMRA [Suspect]
     Active Substance: TOCILIZUMAB
     Route: 042
  2. ACTEMRA [Suspect]
     Active Substance: TOCILIZUMAB
     Route: 042
     Dates: start: 20161129, end: 20170222
  3. MINOXIDIL. [Concomitant]
     Active Substance: MINOXIDIL
     Route: 065
  4. INFLIXIMAB [Concomitant]
     Active Substance: INFLIXIMAB
  5. LABETALOL [Concomitant]
     Active Substance: LABETALOL\LABETALOL HYDROCHLORIDE
     Route: 065
  6. METHOTREXATE. [Concomitant]
     Active Substance: METHOTREXATE
  7. ACTEMRA [Suspect]
     Active Substance: TOCILIZUMAB
     Indication: TAKAYASU^S ARTERITIS
     Route: 058
     Dates: start: 20170427
  8. AMLODIPINE [Concomitant]
     Active Substance: AMLODIPINE BESYLATE
  9. MELATONIN [Concomitant]
     Active Substance: MELATONIN
  10. FOLIC ACID. [Concomitant]
     Active Substance: FOLIC ACID
  11. ACTEMRA [Suspect]
     Active Substance: TOCILIZUMAB
     Indication: TAKAYASU^S ARTERITIS
     Route: 042
     Dates: start: 20160317
  12. ACETYLSALICYLIC ACID [Concomitant]
     Active Substance: ASPIRIN

REACTIONS (11)
  - Weight increased [Unknown]
  - Aortic disorder [Unknown]
  - Tibia fracture [Recovering/Resolving]
  - Anxiety [Unknown]
  - Body temperature increased [Unknown]
  - Renal vessel disorder [Unknown]
  - Blood pressure fluctuation [Unknown]
  - Vascular pain [Unknown]
  - Aortic stenosis [Not Recovered/Not Resolved]
  - Oxygen saturation decreased [Unknown]
  - Blood pressure increased [Unknown]

NARRATIVE: CASE EVENT DATE: 20160907
